FAERS Safety Report 24118348 (Version 1)
Quarter: 2024Q3

REPORT INFORMATION
  Report Type: Report from Study
  Country: US (occurrence: None)
  Receive Date: 20240722
  Receipt Date: 20240722
  Transmission Date: 20241017
  Serious: Yes (Hospitalization, Other)
  Sender: ASTRAZENECA
  Company Number: 2019SF26515

PATIENT
  Age: 70 Year
  Sex: Female
  Weight: 73.5 kg

DRUGS (4)
  1. BRILINTA [Suspect]
     Active Substance: TICAGRELOR
     Indication: Stent placement
     Route: 048
     Dates: start: 20190723
  2. METOPROLOL SUCCINATE [Suspect]
     Active Substance: METOPROLOL SUCCINATE
     Indication: Blood pressure abnormal
     Dosage: 25 MG HALF A TABLET DAILY
     Route: 048
  3. ASPIRIN [Concomitant]
     Active Substance: ASPIRIN
     Indication: Cardiac disorder
     Route: 048
  4. AMLODIPINE BESYLATE [Concomitant]
     Active Substance: AMLODIPINE BESYLATE
     Indication: Blood pressure abnormal
     Route: 048
     Dates: start: 20190723

REACTIONS (18)
  - Diplegia [Recovered/Resolved]
  - Coronary artery occlusion [Recovering/Resolving]
  - Sepsis [Unknown]
  - Thrombosis [Unknown]
  - Memory impairment [Unknown]
  - Muscle strain [Unknown]
  - White blood cell count decreased [Unknown]
  - Back pain [Not Recovered/Not Resolved]
  - Aortic aneurysm [Recovering/Resolving]
  - Micturition urgency [Unknown]
  - Renal disorder [Not Recovered/Not Resolved]
  - Loss of personal independence in daily activities [Unknown]
  - Urinary tract pain [Unknown]
  - Dyspnoea [Recovering/Resolving]
  - Dizziness [Recovered/Resolved]
  - Drug hypersensitivity [Not Recovered/Not Resolved]
  - Product dose omission issue [Not Recovered/Not Resolved]
  - Intentional product misuse [Not Recovered/Not Resolved]

NARRATIVE: CASE EVENT DATE: 20160101
